FAERS Safety Report 10871240 (Version 1)
Quarter: 2015Q1

REPORT INFORMATION
  Report Type: Spontaneous
  Country: CH (occurrence: None)
  Receive Date: 20150223
  Receipt Date: 20150223
  Transmission Date: 20150721
  Serious: Yes (Death)
  Sender: FDA-Public Use
  Company Number: 2015020040

PATIENT
  Age: 83 Year
  Sex: Female

DRUGS (15)
  1. MARCOUMAR (PHENPROCOUMON) [Concomitant]
     Active Substance: PHENPROCOUMON
  2. MOTILIUM (DOMPERIDONE) [Concomitant]
  3. OXYCONTIN RETARD [Concomitant]
  4. NOVALGIN [Suspect]
     Active Substance: METAMIZOLE SODIUM
     Dosage: AS REQUIRED, ORAL
     Route: 048
  5. SYMBICORT [Concomitant]
     Active Substance: BUDESONIDE\FORMOTEROL FUMARATE DIHYDRATE
  6. VI-DE 3 (COLECALCIFEROL) [Concomitant]
  7. COVERSUM 5 MG [Suspect]
     Active Substance: PERINDOPRIL
     Indication: HYPERTENSION
  8. PANTOZOL [Suspect]
     Active Substance: PANTOPRAZOLE SODIUM
     Dosage: 40 MG (20 MG,2 IN 1 D)
  9. ARIMIDEX [Concomitant]
     Active Substance: ANASTROZOLE
  10. CO-AMOXI [Suspect]
     Active Substance: AMOXICILLIN\CLAVULANATE POTASSIUM
     Dates: end: 20150108
  11. DAFALGAN [Suspect]
     Active Substance: ACETAMINOPHEN
     Dosage: AS REQUIRED
  12. TOREM [Suspect]
     Active Substance: TORSEMIDE
     Indication: BRONCHOPNEUMONIA
     Dosage: 40 MG (10 MG,4 IN 1 D)
     Dates: end: 20150108
  13. ELTROXIN LF (LEVOTHYROXINE SODIUM) [Concomitant]
  14. IMIGRAN (SUMATRIPTAN) [Concomitant]
     Active Substance: SUMATRIPTAN
  15. FEMARA [Suspect]
     Active Substance: LETROZOLE

REACTIONS (4)
  - General physical health deterioration [None]
  - Pancytopenia [None]
  - Neutropenia [None]
  - Pyrexia [None]

NARRATIVE: CASE EVENT DATE: 20150108
